FAERS Safety Report 7222681-X (Version None)
Quarter: 2011Q1

REPORT INFORMATION
  Report Type: 
  Country: None (occurrence: None)
  Receive Date: 20110106
  Receipt Date: 20110106
  Transmission Date: 20110831
  Serious: Yes (Disabling, Other)
  Sender: FDA-Public Use
  Company Number: None

PATIENT
  Age: 80 Year
  Sex: Male
  Weight: 74.8435 kg

DRUGS (3)
  1. LEVOFLOXACIN [Suspect]
     Indication: PREMEDICATION
     Dosage: 1 TAB ONLY USED 1 TAB
     Dates: start: 20090301
  2. PROPOXYPHENE HCL AND ACETAMINOPHEN [Suspect]
     Indication: SLEEP DISORDER THERAPY
     Dosage: 1 TAB ONLY USED 1 TAB
     Dates: start: 20101001
  3. PROPOXYPHENE HCL AND ACETAMINOPHEN [Suspect]
     Indication: ANALGESIC THERAPY
     Dosage: 1 TAB ONLY USED 1 TAB
     Dates: start: 20101001

REACTIONS (6)
  - REFUSAL OF TREATMENT BY PATIENT [None]
  - VOMITING [None]
  - FEELING ABNORMAL [None]
  - MUSCULOSKELETAL DISORDER [None]
  - LOSS OF CONSCIOUSNESS [None]
  - RESPIRATORY ARREST [None]
